FAERS Safety Report 6838319-7 (Version None)
Quarter: 2010Q3

REPORT INFORMATION
  Report Type: 
  Country: None (occurrence: None)
  Receive Date: 20100708
  Receipt Date: 20100623
  Transmission Date: 20110219
  Serious: Yes (Hospitalization)
  Sender: FDA-Public Use
  Company Number: FABR-10761

PATIENT
  Age: 67 Year
  Sex: Female
  Weight: 48 kg

DRUGS (13)
  1. FABRAZYME [Suspect]
     Indication: FABRY'S DISEASE
     Dosage: 50 MG, Q2W, INTRAVENOUS, 50 MG, Q2W, INTRAVENOUS
     Route: 042
     Dates: start: 20030929, end: 20040810
  2. FABRAZYME [Suspect]
     Indication: FABRY'S DISEASE
     Dosage: 50 MG, Q2W, INTRAVENOUS, 50 MG, Q2W, INTRAVENOUS
     Route: 042
     Dates: start: 20040907
  3. ALACEPRIL (ALACEPRIL) [Concomitant]
  4. TORSEMIDE [Concomitant]
  5. SPIRONOLACTONE [Concomitant]
  6. ASPIRIN [Concomitant]
  7. FUROSEMIDE [Concomitant]
  8. URSODIOL [Concomitant]
  9. ALLOPURINOL [Concomitant]
  10. CALCIUM POLYSTYRENE SULFONATE (CALCIUM POLYSTYRENE SULFONATE) [Concomitant]
  11. LEVOTHYROXINE SODIUM [Concomitant]
  12. WARFARIN POTASSIUM (WARFARIN POTASSIUM) [Concomitant]
  13. CANDESARTAN CILEXETIL [Concomitant]

REACTIONS (3)
  - BRONCHITIS [None]
  - CARDIAC FAILURE CHRONIC [None]
  - CONDITION AGGRAVATED [None]
